FAERS Safety Report 9364879 (Version 1)
Quarter: 2013Q2

REPORT INFORMATION
  Report Type: Spontaneous
  Country: FR (occurrence: FR)
  Receive Date: 20130624
  Receipt Date: 20130624
  Transmission Date: 20140414
  Serious: Yes (Hospitalization)
  Sender: FDA-Public Use
  Company Number: FR-009507513-1205FRA00005

PATIENT
  Age: 74 Year
  Sex: Female
  Weight: 51 kg

DRUGS (7)
  1. XELEVIA [Suspect]
     Route: 048
     Dates: end: 20111031
  2. TAHOR [Suspect]
     Route: 048
     Dates: start: 201101, end: 20111003
  3. TAHOR [Suspect]
     Route: 048
     Dates: start: 20111017, end: 20111028
  4. EPREX [Concomitant]
     Dates: start: 201010
  5. COVERSYL (PERINDOPRIL ARGININE) [Concomitant]
  6. AMLOR [Concomitant]
  7. GLUCOR [Concomitant]

REACTIONS (1)
  - Hepatitis [Recovered/Resolved]
